FAERS Safety Report 10263732 (Version 2)
Quarter: 2015Q3

REPORT INFORMATION
  Report Type: Spontaneous
  Country: US (occurrence: US)
  Receive Date: 20140627
  Receipt Date: 20150817
  Transmission Date: 20151125
  Serious: No
  Sender: FDA-Public Use
  Company Number: US-GILEAD-2014-0106857

PATIENT
  Age: 79 Year
  Sex: Male

DRUGS (16)
  1. GABAPENTIN. [Concomitant]
     Active Substance: GABAPENTIN
  2. FENOFIBRATE. [Concomitant]
     Active Substance: FENOFIBRATE
  3. NEXIUM [Concomitant]
     Active Substance: ESOMEPRAZOLE MAGNESIUM
  4. COMBIVENT [Concomitant]
     Active Substance: ALBUTEROL SULFATE\IPRATROPIUM BROMIDE
  5. TRAVATAN Z [Concomitant]
     Active Substance: TRAVOPROST
  6. ISOSORBIDE. [Concomitant]
     Active Substance: ISOSORBIDE
  7. AMITRIPTYLINE [Concomitant]
     Active Substance: AMITRIPTYLINE
  8. ADVAIR HFA [Concomitant]
     Active Substance: FLUTICASONE PROPIONATE\SALMETEROL XINAFOATE
  9. LYRICA [Concomitant]
     Active Substance: PREGABALIN
  10. WARFARIN [Concomitant]
     Active Substance: WARFARIN
  11. PREDNISONE. [Concomitant]
     Active Substance: PREDNISONE
  12. LANTUS [Concomitant]
     Active Substance: INSULIN GLARGINE
  13. COLCHICINE. [Concomitant]
     Active Substance: COLCHICINE
  14. LASIX [Concomitant]
     Active Substance: FUROSEMIDE
  15. LETAIRIS [Suspect]
     Active Substance: AMBRISENTAN
     Indication: PULMONARY ARTERIAL HYPERTENSION
     Dosage: 5 MG, QD
     Route: 065
     Dates: start: 20120207
  16. NOVOLOG [Concomitant]
     Active Substance: INSULIN ASPART

REACTIONS (1)
  - Fall [Recovered/Resolved]
